FAERS Safety Report 9145764 (Version 1)
Quarter: 2013Q1

REPORT INFORMATION
  Report Type: Spontaneous
  Country: US (occurrence: None)
  Receive Date: 20130227
  Receipt Date: 20130227
  Transmission Date: 20140127
  Serious: Yes (Hospitalization)
  Sender: FDA-Public Use
  Company Number: None

PATIENT
  Age: 15 Year
  Sex: Female

DRUGS (1)
  1. ETOPOSIDE TEVA [Suspect]
     Indication: OVARIAN GRANULOSA CELL TUMOUR
     Dosage: 218 MG  X1  IV
     Route: 042
     Dates: start: 20121226, end: 20121226

REACTIONS (4)
  - Flushing [None]
  - Cough [None]
  - Dyspnoea [None]
  - Product substitution issue [None]
